FAERS Safety Report 16382365 (Version 1)
Quarter: 2019Q2

REPORT INFORMATION
  Report Type: Spontaneous
  Country: US (occurrence: US)
  Receive Date: 20190603
  Receipt Date: 20190603
  Transmission Date: 20190711
  Serious: No
  Sender: FDA-Public Use
  Company Number: US-AUROBINDO-AUR-APU-2018-043759

PATIENT
  Sex: Female

DRUGS (1)
  1. VENLAFAXINE [Suspect]
     Active Substance: VENLAFAXINE HYDROCHLORIDE
     Indication: HOT FLUSH
     Dosage: UNK
     Route: 065
     Dates: start: 20180709

REACTIONS (5)
  - Nausea [Unknown]
  - Tremor [Unknown]
  - Product substitution issue [Unknown]
  - Dizziness [Unknown]
  - Nervousness [Unknown]
